FAERS Safety Report 8343726-X (Version None)
Quarter: 2012Q2

REPORT INFORMATION
  Report Type: 
  Country: None (occurrence: None)
  Receive Date: 20120508
  Receipt Date: 20120508
  Transmission Date: 20120825
  Serious: Yes (Other)
  Sender: FDA-Public Use
  Company Number: None

PATIENT

DRUGS (1)
  1. ROCURONIUM BROMIDE [Suspect]
     Dates: start: 20120419, end: 20120419

REACTIONS (1)
  - DRUG INEFFECTIVE [None]
